FAERS Safety Report 14374371 (Version 1)
Quarter: 2018Q1

REPORT INFORMATION
  Report Type: Spontaneous
  Country: DE (occurrence: DE)
  Receive Date: 20180111
  Receipt Date: 20180111
  Transmission Date: 20180509
  Serious: Yes (Other)
  Sender: FDA-Public Use
  Company Number: DE-BIOGEN-2018BI00507889

PATIENT
  Sex: Female

DRUGS (1)
  1. TECFIDERA [Suspect]
     Active Substance: DIMETHYL FUMARATE
     Indication: PRODUCT USED FOR UNKNOWN INDICATION
     Dosage: MAINTENANCE DOSE
     Route: 048
     Dates: start: 201711

REACTIONS (6)
  - Hepatitis [Not Recovered/Not Resolved]
  - Eye disorder [Unknown]
  - Lymphocyte count abnormal [Not Recovered/Not Resolved]
  - Basophil count increased [Not Recovered/Not Resolved]
  - Eosinophil count increased [Not Recovered/Not Resolved]
  - Respiratory disorder [Unknown]

NARRATIVE: CASE EVENT DATE: 201712
